FAERS Safety Report 16766209 (Version 8)
Quarter: 2020Q3

REPORT INFORMATION
  Report Type: Spontaneous
  Country: IN (occurrence: IN)
  Receive Date: 20190903
  Receipt Date: 20200811
  Transmission Date: 20201102
  Serious: Yes (Other)
  Sender: FDA-Public Use
  Company Number: IN-PFIZER INC-2019352041

PATIENT
  Age: 70 Year
  Sex: Male
  Weight: 66 kg

DRUGS (10)
  1. SUTENT [Suspect]
     Active Substance: SUNITINIB MALATE
     Dosage: UNK
     Dates: start: 2019, end: 20191208
  2. NUZIDE [Concomitant]
     Indication: DIABETES MELLITUS
     Dosage: UNK
  3. SUTENT [Suspect]
     Active Substance: SUNITINIB MALATE
     Dosage: 37.5 MG, UNK
     Dates: start: 2019, end: 2019
  4. SUTENT [Suspect]
     Active Substance: SUNITINIB MALATE
     Dosage: 25 MG(2 WEEKS ON AND 1 WEEK OFF)
  5. SUTENT [Suspect]
     Active Substance: SUNITINIB MALATE
     Indication: METASTATIC RENAL CELL CARCINOMA
     Dosage: 50 MG, 1X/DAY
     Route: 048
     Dates: start: 20190805, end: 201908
  6. PANTOCID [Concomitant]
     Dosage: 1 DF, 1X/DAY
     Dates: start: 20191123
  7. THYROX [Concomitant]
     Indication: THYROID DISORDER
     Dosage: 75 MG, UNK
  8. LOSAR [LOSARTAN POTASSIUM] [Concomitant]
     Active Substance: LOSARTAN POTASSIUM
     Indication: HYPERTENSION
     Dosage: 50 MG, UNK
  9. SUTENT [Suspect]
     Active Substance: SUNITINIB MALATE
     Dosage: 25 MG, 1X/DAY
     Dates: start: 2019, end: 20191116
  10. SUTENT [Suspect]
     Active Substance: SUNITINIB MALATE
     Dosage: 25 MG, 1X/DAY (OD)

REACTIONS (12)
  - Nausea [Unknown]
  - Diarrhoea [Unknown]
  - Pathological fracture [Recovering/Resolving]
  - Lung consolidation [Unknown]
  - Blood pressure systolic increased [Unknown]
  - Malaise [Unknown]
  - Mouth ulceration [Unknown]
  - Vomiting [Unknown]
  - Pelvic pain [Unknown]
  - Back pain [Unknown]
  - Arthralgia [Unknown]
  - Dizziness [Unknown]

NARRATIVE: CASE EVENT DATE: 201908
